FAERS Safety Report 4386288-4 (Version None)
Quarter: 2004Q2

REPORT INFORMATION
  Report Type: 
  Country: None (occurrence: None)
  Receive Date: 20040622
  Receipt Date: 20040607
  Transmission Date: 20050107
  Serious: Yes (Hospitalization)
  Sender: FDA-Public Use
  Company Number: S04-EST-02356-01

PATIENT
  Age: 13 Year
  Sex: Female

DRUGS (4)
  1. CIPRALEX (ESCITALOPRAM) [Suspect]
     Indication: DEPRESSION
     Dosage: 10 MG QD PO
     Route: 048
     Dates: start: 20040401, end: 20040418
  2. CIPRALEX (ESCITALOPRAM) [Suspect]
     Indication: DEPRESSION
     Dosage: 5 MG QD PO
     Route: 048
     Dates: start: 20040408, end: 20040401
  3. TREXAN (METHORTREXATE) [Concomitant]
  4. ANTREX (FOLIC ACID) [Concomitant]

REACTIONS (15)
  - AGITATION [None]
  - ANXIETY [None]
  - ARTHROPATHY [None]
  - CIRCULATORY COLLAPSE [None]
  - CONVERSION DISORDER [None]
  - COORDINATION ABNORMAL [None]
  - CYANOSIS [None]
  - DYSARTHRIA [None]
  - DYSPNOEA [None]
  - HYPERVENTILATION [None]
  - MUSCULAR WEAKNESS [None]
  - PANIC ATTACK [None]
  - PSYCHOTIC DISORDER [None]
  - RESPIRATORY DISORDER [None]
  - TREMOR [None]
